FAERS Safety Report 5058510-2 (Version None)
Quarter: 2006Q2

REPORT INFORMATION
  Report Type: 
  Country: None (occurrence: None)
  Receive Date: 20060627
  Receipt Date: 20050615
  Transmission Date: 20061013
  Serious: No
  Sender: FDA-Public Use
  Company Number: 407976

PATIENT
  Sex: Male

DRUGS (3)
  1. XELODA [Suspect]
     Indication: COLON CANCER
     Dosage: ORAL
     Route: 048
     Dates: end: 20050415
  2. OXALIPLATIN (OXALIPLATIN) [Concomitant]
  3. AVASTIN [Concomitant]

REACTIONS (4)
  - DIFFICULTY IN WALKING [None]
  - METASTASES TO LIVER [None]
  - PAIN [None]
  - PALMAR-PLANTAR ERYTHRODYSAESTHESIA SYNDROME [None]
